FAERS Safety Report 15842850 (Version 1)
Quarter: 2018Q4

REPORT INFORMATION
  Report Type: Spontaneous
  Country: US (occurrence: US)
  Receive Date: 20181224
  Receipt Date: 20181224
  Transmission Date: 20190205
  Serious: Yes (Other)
  Sender: FDA-Public Use
  Company Number: None

PATIENT
  Age: 72 Year
  Sex: Male
  Weight: 81.65 kg

DRUGS (11)
  1. MONTELUKAST [Concomitant]
     Active Substance: MONTELUKAST SODIUM
  2. APIXABAN [Concomitant]
     Active Substance: APIXABAN
  3. ALBUTEROL INHALER [Concomitant]
     Active Substance: ALBUTEROL
  4. PULMICORT FLEXHALER [Concomitant]
     Active Substance: BUDESONIDE
  5. OCUVITE [Concomitant]
     Active Substance: VITAMINS
  6. RANITIDINE. [Concomitant]
     Active Substance: RANITIDINE
  7. CARVEDILOL. [Concomitant]
     Active Substance: CARVEDILOL
  8. SIMVASTATIN. [Concomitant]
     Active Substance: SIMVASTATIN
  9. ULTANE [Suspect]
     Active Substance: SEVOFLURANE
     Indication: ANAESTHESIA
     Dates: start: 20181203
  10. ELIQUIS [Suspect]
     Active Substance: APIXABAN
     Indication: CARDIOVASCULAR EVENT PROPHYLAXIS
     Route: 048
     Dates: start: 201811
  11. FUROSEMIDE. [Concomitant]
     Active Substance: FUROSEMIDE

REACTIONS (7)
  - Haemoptysis [None]
  - Dyspnoea [None]
  - Asthma [None]
  - Tissue injury [None]
  - Procedural complication [None]
  - Viral infection [None]
  - Bronchospasm [None]

NARRATIVE: CASE EVENT DATE: 20181206
